FAERS Safety Report 8049382-2 (Version None)
Quarter: 2012Q1

REPORT INFORMATION
  Report Type: 
  Country: None (occurrence: None)
  Receive Date: 20120117
  Receipt Date: 20120111
  Transmission Date: 20120608
  Serious: Yes (Other)
  Sender: FDA-Public Use
  Company Number: US-ELI_LILLY_AND_COMPANY-US200808003205

PATIENT
  Sex: Female
  Weight: 95.51 kg

DRUGS (6)
  1. CARBOPLATIN [Suspect]
     Indication: NON-SMALL CELL LUNG CANCER
     Dosage: 5 D/F, OTHER
     Route: 042
     Dates: start: 20080319, end: 20080430
  2. VITAMIN B-12 [Concomitant]
     Indication: VITAMIN SUPPLEMENTATION
     Dates: start: 20080310
  3. FOLIC ACID [Concomitant]
     Indication: VITAMIN SUPPLEMENTATION
     Dates: start: 20080310
  4. PEMETREXED [Suspect]
     Dosage: 500 MG/M2, OTHER
     Route: 042
     Dates: start: 20080521, end: 20080702
  5. RADIATION [Suspect]
     Indication: NON-SMALL CELL LUNG CANCER
     Dosage: 5 D/F, OTHER
     Dates: start: 20080419, end: 20080512
  6. PEMETREXED [Suspect]
     Indication: NON-SMALL CELL LUNG CANCER
     Dosage: 500 MG/M2, OTHER
     Route: 042
     Dates: start: 20080319, end: 20080430

REACTIONS (2)
  - RADIATION PNEUMONITIS [None]
  - DYSPNOEA [None]
